FAERS Safety Report 8065529-6 (Version None)
Quarter: 2012Q1

REPORT INFORMATION
  Report Type: 
  Country: None (occurrence: None)
  Receive Date: 20120124
  Receipt Date: 20120117
  Transmission Date: 20120608
  Serious: Yes (Hospitalization)
  Sender: FDA-Public Use
  Company Number: JP-SANOFI-AVENTIS-2011SA080961

PATIENT
  Age: 60 Year
  Sex: Male

DRUGS (14)
  1. ENALAPRIL MALEATE [Suspect]
     Route: 048
     Dates: end: 20111110
  2. LASIX [Suspect]
     Indication: HYPERTENSION
     Route: 065
     Dates: start: 20111116, end: 20111124
  3. LIVALO [Suspect]
     Route: 048
     Dates: end: 20111110
  4. ASPIRIN [Suspect]
     Route: 048
     Dates: start: 20111116, end: 20111124
  5. LANSOPRAZOLE [Suspect]
     Route: 048
     Dates: start: 20111005, end: 20111110
  6. WARFARIN SODIUM [Suspect]
     Indication: ARTERIAL THROMBOSIS
     Route: 048
     Dates: end: 20111110
  7. MAGNESIUM OXIDE [Suspect]
     Indication: CONSTIPATION
     Route: 048
     Dates: end: 20111110
  8. PLAVIX [Suspect]
     Indication: ACUTE CORONARY SYNDROME
     Route: 048
     Dates: end: 20111110
  9. CARVEDILOL [Suspect]
     Indication: HYPERTENSION
     Route: 048
     Dates: end: 20111110
  10. LASIX [Suspect]
     Route: 065
     Dates: end: 20111110
  11. TEPRENONE [Suspect]
     Route: 048
     Dates: end: 20111110
  12. ASPIRIN [Suspect]
     Route: 048
     Dates: end: 20111110
  13. SENNOSIDE A+B [Suspect]
     Indication: CONSTIPATION
     Route: 048
     Dates: end: 20111110
  14. ENALAPRIL MALEATE [Suspect]
     Indication: HYPERTENSION
     Route: 048
     Dates: start: 20111116, end: 20111124

REACTIONS (4)
  - SEPSIS [None]
  - GRANULOCYTOPENIA [None]
  - ORAL CANDIDIASIS [None]
  - LYMPHOCYTE STIMULATION TEST POSITIVE [None]
